FAERS Safety Report 12633481 (Version 3)
Quarter: 2016Q3

REPORT INFORMATION
  Report Type: Spontaneous
  Country: DE (occurrence: DE)
  Receive Date: 20160808
  Receipt Date: 20160825
  Transmission Date: 20161109
  Serious: Yes (Death)
  Sender: FDA-Public Use
  Company Number: PHHY2016DE107025

PATIENT
  Sex: Male
  Weight: 100 kg

DRUGS (10)
  1. ENTRESTO [Suspect]
     Active Substance: SACUBITRIL\VALSARTAN
     Indication: CARDIAC FAILURE CHRONIC
     Dosage: 1 DF, BID
     Route: 048
     Dates: start: 20160729
  2. SPIRONOLACTONE. [Concomitant]
     Active Substance: SPIRONOLACTONE
     Indication: PRODUCT USED FOR UNKNOWN INDICATION
     Route: 065
  3. ASPIRIN. [Concomitant]
     Active Substance: ASPIRIN
     Indication: CORONARY ARTERY DISEASE
     Dosage: 1 DF, QD
     Route: 048
  4. NITRENDIPIN [Concomitant]
     Active Substance: NITRENDIPINE
     Indication: PRODUCT USED FOR UNKNOWN INDICATION
     Route: 065
  5. NOVALGIN [Concomitant]
     Active Substance: METAMIZOLE SODIUM
     Indication: OSTEOARTHRITIS
     Dosage: 1 DF, QD
     Route: 048
  6. JANUVIA [Concomitant]
     Active Substance: SITAGLIPTIN PHOSPHATE
     Indication: TYPE 2 DIABETES MELLITUS
     Dosage: 1 DF, QD
     Route: 048
  7. ENTRESTO [Suspect]
     Active Substance: SACUBITRIL\VALSARTAN
     Indication: ISCHAEMIC CARDIOMYOPATHY
  8. TARGIN [Concomitant]
     Active Substance: NALOXONE HYDROCHLORIDE\OXYCODONE HYDROCHLORIDE
     Indication: OSTEOARTHRITIS
     Dosage: 1 DF, QD
     Route: 048
  9. TORASEMIDE [Concomitant]
     Active Substance: TORSEMIDE
     Indication: ISCHAEMIC CARDIOMYOPATHY
  10. TORASEMIDE [Concomitant]
     Active Substance: TORSEMIDE
     Indication: CORONARY ARTERY DISEASE
     Route: 048

REACTIONS (13)
  - Abdominal pain [Fatal]
  - Capillary leak syndrome [Fatal]
  - Intestinal infarction [Fatal]
  - Hypotension [Fatal]
  - Urticaria [Fatal]
  - Cellulitis [Fatal]
  - Mesenteric artery embolism [Fatal]
  - Oedema peripheral [Fatal]
  - Escherichia sepsis [Fatal]
  - Peritonitis [Fatal]
  - Colitis [Fatal]
  - Body temperature increased [Fatal]
  - White blood cell count decreased [Fatal]

NARRATIVE: CASE EVENT DATE: 20160802
